FAERS Safety Report 5615291-9 (Version None)
Quarter: 2008Q1

REPORT INFORMATION
  Report Type: 
  Country: None (occurrence: None)
  Receive Date: 20080201
  Receipt Date: 20080128
  Transmission Date: 20080703
  Serious: Yes (Other)
  Sender: FDA-Public Use
  Company Number: WWISSUE-139

PATIENT
  Age: 20 Year
  Sex: Female

DRUGS (3)
  1. LITHIUM CARBONATE [Suspect]
     Indication: BIPOLAR DISORDER
     Dosage: BID, ORAL
     Route: 048
     Dates: start: 20000101, end: 20070101
  2. WELLBUTRIN XL [Concomitant]
  3. MINOCYCLINE HCL [Concomitant]

REACTIONS (3)
  - ELECTROCARDIOGRAM ABNORMAL [None]
  - EPILEPSY [None]
  - GRAND MAL CONVULSION [None]
